FAERS Safety Report 15966201 (Version 1)
Quarter: 2019Q1

REPORT INFORMATION
  Report Type: Spontaneous
  Country: US (occurrence: US)
  Receive Date: 20190123
  Receipt Date: 20190123
  Transmission Date: 20190418
  Serious: No
  Sender: FDA-Public Use
  Company Number: None

PATIENT
  Age: 41 Year
  Sex: Male

DRUGS (1)
  1. TALTZ [Suspect]
     Active Substance: IXEKIZUMAB
     Dates: start: 201810

REACTIONS (4)
  - Periorbital disorder [None]
  - Pain [None]
  - Erythema [None]
  - Tenderness [None]

NARRATIVE: CASE EVENT DATE: 20190123
